FAERS Safety Report 16617758 (Version 2)
Quarter: 2019Q3

REPORT INFORMATION
  Report Type: Report from Study
  Country: US (occurrence: US)
  Receive Date: 20190723
  Receipt Date: 20190808
  Transmission Date: 20191004
  Serious: Yes (Other)
  Sender: FDA-Public Use
  Company Number: US-PFIZER INC-2019073401

PATIENT
  Age: 77 Year
  Sex: Female

DRUGS (1)
  1. IBRANCE [Suspect]
     Active Substance: PALBOCICLIB
     Indication: BREAST CANCER FEMALE
     Dosage: 125 MG, CYCLIC (DAILY FOR 21 DAYS OF 28 DAY CYCLE)
     Route: 048
     Dates: start: 20190208

REACTIONS (14)
  - Bone marrow failure [Unknown]
  - Hair growth abnormal [Unknown]
  - Hair texture abnormal [Unknown]
  - Product dose omission [Unknown]
  - Nausea [Unknown]
  - Weight increased [Not Recovered/Not Resolved]
  - Leukopenia [Recovered/Resolved]
  - Alopecia [Unknown]
  - Insomnia [Unknown]
  - Faeces soft [Unknown]
  - Sneezing [Unknown]
  - Tumour marker increased [Recovering/Resolving]
  - Fatigue [Not Recovered/Not Resolved]
  - Nasal congestion [Unknown]

NARRATIVE: CASE EVENT DATE: 2019
